FAERS Safety Report 14006715 (Version 2)
Quarter: 2017Q3

REPORT INFORMATION
  Report Type: Spontaneous
  Country: JP (occurrence: JP)
  Receive Date: 20170925
  Receipt Date: 20170928
  Transmission Date: 20171128
  Serious: Yes (Hospitalization, Other)
  Sender: FDA-Public Use
  Company Number: JP-HORIZON-BUP-0074-2017

PATIENT
  Age: 3 Year
  Sex: Female

DRUGS (6)
  1. BUPHENYL [Suspect]
     Active Substance: SODIUM PHENYLBUTYRATE
     Indication: UREA CYCLE DISORDER
     Dosage: 2500 MG DAILY
     Route: 048
     Dates: start: 20170828
  2. ALFAROL [Concomitant]
     Active Substance: ALFACALCIDOL
     Dosage: 1 DF DAILY, ORAL
  3. ARGI-U [Concomitant]
     Dosage: 2.8 G DAILY, ORAL
     Route: 048
  4. AMIYU [Concomitant]
     Active Substance: AMINO ACIDS
     Dosage: 2 DF DAILY, ORAL
     Route: 048
  5. CITRULLINE [Concomitant]
     Active Substance: CITRULLINE
     Dosage: 1200 MG DAILY, ORAL
     Route: 048
  6. LACTULOSE. [Concomitant]
     Active Substance: LACTULOSE
     Dosage: 9 MG DAILY, ORAL
     Route: 048

REACTIONS (3)
  - Oral mucosal exfoliation [Recovered/Resolved]
  - Hyperammonaemia [Recovered/Resolved]
  - Fracture [Recovering/Resolving]

NARRATIVE: CASE EVENT DATE: 201708
